FAERS Safety Report 13931661 (Version 1)
Quarter: 2017Q3

REPORT INFORMATION
  Report Type: Spontaneous
  Country: DE (occurrence: DE)
  Receive Date: 20170904
  Receipt Date: 20170904
  Transmission Date: 20171127
  Serious: Yes (Congenital Anomaly, Other)
  Sender: FDA-Public Use
  Company Number: DE-TORRENT-00007020

PATIENT
  Age: 1 Day
  Sex: Male
  Weight: 3 kg

DRUGS (4)
  1. PROTAPHANE [Concomitant]
     Active Substance: INSULIN HUMAN
  2. FOLIC ACID. [Concomitant]
     Active Substance: FOLIC ACID
  3. BALDRIAN [Concomitant]
  4. ESCITALOPRAM [Suspect]
     Active Substance: ESCITALOPRAM OXALATE

REACTIONS (9)
  - Congenital pulmonary hypertension [Recovered/Resolved]
  - Premature baby [Unknown]
  - Pulmonary artery stenosis congenital [Recovered/Resolved]
  - Atrial septal defect [Not Recovered/Not Resolved]
  - Cryptorchism [Unknown]
  - Neonatal respiratory distress syndrome [Recovered/Resolved]
  - Selective eating disorder [Recovered/Resolved]
  - Congenital tricuspid valve incompetence [Recovered/Resolved]
  - Foetal exposure during pregnancy [Unknown]

NARRATIVE: CASE EVENT DATE: 20161114
